FAERS Safety Report 7480851-X (Version None)
Quarter: 2011Q2

REPORT INFORMATION
  Report Type: 
  Country: None (occurrence: None)
  Receive Date: 20110516
  Receipt Date: 20110503
  Transmission Date: 20111010
  Serious: Yes (Other)
  Sender: FDA-Public Use
  Company Number: PHHY2011FR21529

PATIENT
  Sex: Female

DRUGS (3)
  1. LEVOTHYROXINE SODIUM [Concomitant]
  2. CLOZAPINE [Suspect]
     Indication: SCHIZOPHRENIA
     Dosage: 250 AND 300 MG DAILY
     Dates: start: 20080701
  3. CLOZAPINE [Suspect]
     Dosage: 325 MG, DAILY
     Dates: end: 20110111

REACTIONS (1)
  - PAROTITIS [None]
